FAERS Safety Report 7685919-0 (Version None)
Quarter: 2011Q3

REPORT INFORMATION
  Report Type: 
  Country: None (occurrence: None)
  Receive Date: 20110815
  Receipt Date: 20110815
  Transmission Date: 20111222
  Serious: Yes (Disabling, Other)
  Sender: FDA-Public Use
  Company Number: None

PATIENT
  Age: 61 Year
  Sex: Male
  Weight: 79.3795 kg

DRUGS (1)
  1. LEVOFLOXACIN [Suspect]
     Indication: PNEUMONIA
     Dosage: LEVOFLOXACIN 500 MG 1 DAILY FOR SEVEN DAYS
     Dates: start: 20110718, end: 20110724

REACTIONS (2)
  - TENDONITIS [None]
  - TENDON RUPTURE [None]
